FAERS Safety Report 15489231 (Version 2)
Quarter: 2019Q1

REPORT INFORMATION
  Report Type: Spontaneous
  Country: US (occurrence: US)
  Receive Date: 20181011
  Receipt Date: 20190307
  Transmission Date: 20190417
  Serious: No
  Sender: FDA-Public Use
  Company Number: US-PFIZER INC-2018412770

PATIENT
  Age: 37 Year
  Sex: Female

DRUGS (2)
  1. DIAZEPAM. [Suspect]
     Active Substance: DIAZEPAM
     Indication: ANAESTHETIC PREMEDICATION
  2. DIAZEPAM. [Suspect]
     Active Substance: DIAZEPAM
     Indication: OESOPHAGOGASTRODUODENOSCOPY
     Dosage: UNK (TAKEN ONLY ONCE)
     Dates: start: 1998

REACTIONS (4)
  - Migraine [Unknown]
  - Aggression [Unknown]
  - Drug hypersensitivity [Not Recovered/Not Resolved]
  - Mental status changes [Unknown]

NARRATIVE: CASE EVENT DATE: 1998
